FAERS Safety Report 8850401 (Version 2)
Quarter: 2012Q4

REPORT INFORMATION
  Report Type: 
  Country: US (occurrence: US)
  Receive Date: 20121019
  Receipt Date: 20121031
  Transmission Date: 20130627
  Serious: Yes (Disabling)
  Sender: FDA-Public Use
  Company Number: US-ABBOTT-12P-163-0995376-00

PATIENT
  Sex: Female
  Weight: 95.34 kg

DRUGS (13)
  1. HUMIRA [Suspect]
     Indication: RHEUMATOID ARTHRITIS
     Dates: start: 201112, end: 20121019
  2. ARAVA [Concomitant]
     Indication: RHEUMATOID ARTHRITIS
     Dates: start: 2000
  3. VERAPAMIL [Concomitant]
     Indication: MIGRAINE PROPHYLAXIS
  4. TOPAMAX [Concomitant]
     Indication: MIGRAINE PROPHYLAXIS
  5. MAXALT [Concomitant]
     Indication: MIGRAINE
  6. RELPAX [Concomitant]
     Indication: MIGRAINE
  7. VICODIN [Concomitant]
     Indication: PAIN
  8. FLEXERIL [Concomitant]
     Indication: MUSCLE SPASMS
  9. KLONOPIN [Concomitant]
     Indication: ANXIETY
  10. TYLENOL W/CODEINE NO. 3 [Concomitant]
     Indication: PAIN
  11. ELAVIL [Concomitant]
     Indication: PRODUCT USED FOR UNKNOWN INDICATION
  12. LIDODERM [Concomitant]
     Indication: NEURALGIA
  13. LIDOCAINE [Concomitant]
     Indication: TRIGEMINAL NEURALGIA
     Route: 061
     Dates: start: 20121019

REACTIONS (7)
  - Abasia [Not Recovered/Not Resolved]
  - Neuralgia [Not Recovered/Not Resolved]
  - Nervous system disorder [Not Recovered/Not Resolved]
  - Asthenia [Not Recovered/Not Resolved]
  - Trigeminal neuralgia [Not Recovered/Not Resolved]
  - Fatigue [Not Recovered/Not Resolved]
  - Fatigue [Not Recovered/Not Resolved]
